FAERS Safety Report 4915765-X (Version None)
Quarter: 2006Q1

REPORT INFORMATION
  Report Type: 
  Country: None (occurrence: None)
  Receive Date: 20060214
  Receipt Date: 20060131
  Transmission Date: 20060701
  Serious: Yes (Death)
  Sender: FDA-Public Use
  Company Number: US200602000111

PATIENT
  Age: 92 Year
  Sex: Male

DRUGS (1)
  1. XIGRIS (DROTRECOGIN ALFA (ACTIVATED)) VIAL [Suspect]
     Indication: EMPYEMA

REACTIONS (2)
  - CHEST TUBE INSERTION [None]
  - PROCEDURAL PAIN [None]
